FAERS Safety Report 5977626-7 (Version None)
Quarter: 2008Q4

REPORT INFORMATION
  Report Type: 
  Country: None (occurrence: None)
  Receive Date: 20081203
  Receipt Date: 20081125
  Transmission Date: 20090506
  Serious: Yes (Hospitalization, Other)
  Sender: FDA-Public Use
  Company Number: US-MERCK-0706USA00954

PATIENT
  Age: 80 Year
  Sex: Female

DRUGS (4)
  1. FOSAMAX [Suspect]
     Indication: OSTEOPOROSIS
     Route: 048
     Dates: start: 20060101, end: 20060501
  2. FOSAMAX [Suspect]
     Route: 048
     Dates: start: 20000901, end: 20060101
  3. SINEMET [Concomitant]
     Indication: PARKINSON'S DISEASE
     Route: 048
  4. VIOXX [Concomitant]
     Route: 048

REACTIONS (22)
  - ADVERSE DRUG REACTION [None]
  - ANXIETY [None]
  - ARTHRALGIA [None]
  - BRADYKINESIA [None]
  - COMPRESSION FRACTURE [None]
  - DEHYDRATION [None]
  - DELIRIUM [None]
  - DEMENTIA ALZHEIMER'S TYPE [None]
  - DEPRESSION [None]
  - DYSPHAGIA [None]
  - FALL [None]
  - FEMUR FRACTURE [None]
  - HYPERTENSION [None]
  - LOWER LIMB FRACTURE [None]
  - MALNUTRITION [None]
  - OSTEONECROSIS [None]
  - PARKINSONISM [None]
  - SCIATICA [None]
  - SPINAL COLUMN STENOSIS [None]
  - TACHYCARDIA [None]
  - TEMPOROMANDIBULAR JOINT SYNDROME [None]
  - URINARY TRACT INFECTION [None]
